FAERS Safety Report 23772440 (Version 1)
Quarter: 2024Q2

REPORT INFORMATION
  Report Type: Spontaneous
  Country: KR (occurrence: KR)
  Receive Date: 20240423
  Receipt Date: 20240423
  Transmission Date: 20240716
  Serious: Yes (Other)
  Sender: FDA-Public Use
  Company Number: KR-OPELLA-2024OHG013748

PATIENT
  Sex: Female

DRUGS (8)
  1. XYZAL [Suspect]
     Active Substance: LEVOCETIRIZINE DIHYDROCHLORIDE
     Indication: Nasopharyngitis
     Route: 048
     Dates: start: 20220323, end: 20220323
  2. XYZAL [Suspect]
     Active Substance: LEVOCETIRIZINE DIHYDROCHLORIDE
     Indication: Off label use
  3. LEVODROPROPIZINE [Suspect]
     Active Substance: LEVODROPROPIZINE
     Indication: Nasopharyngitis
     Route: 048
     Dates: start: 20220323, end: 20220323
  4. ERDOSTEINE [Suspect]
     Active Substance: ERDOSTEINE
     Indication: Nasopharyngitis
     Route: 048
     Dates: start: 20220323, end: 20220323
  5. REBAMIPIDE [Suspect]
     Active Substance: REBAMIPIDE
     Indication: Nasopharyngitis
     Route: 048
     Dates: start: 20220323, end: 20220323
  6. MONTELUKAST SODIUM [Suspect]
     Active Substance: MONTELUKAST SODIUM
     Indication: Nasopharyngitis
     Route: 048
     Dates: start: 20220323, end: 20220323
  7. LOXOPROFEN SODIUM DIHYDRATE [Suspect]
     Active Substance: LOXOPROFEN SODIUM DIHYDRATE
     Indication: Nasopharyngitis
     Route: 048
     Dates: start: 20220323, end: 20220323
  8. AMOXICILLIN\CLAVULANATE POTASSIUM [Suspect]
     Active Substance: AMOXICILLIN\CLAVULANATE POTASSIUM
     Indication: Nasopharyngitis
     Route: 048
     Dates: start: 20220323, end: 20220323

REACTIONS (7)
  - Hyperaemia [Recovered/Resolved]
  - Rhinorrhoea [Recovered/Resolved]
  - Chest discomfort [Recovered/Resolved]
  - Anaphylactic reaction [Recovered/Resolved]
  - Vomiting [Recovered/Resolved]
  - Diarrhoea [Recovered/Resolved]
  - Off label use [Unknown]

NARRATIVE: CASE EVENT DATE: 20220323
